FAERS Safety Report 9728741 (Version 2)
Quarter: 2014Q1

REPORT INFORMATION
  Report Type: Spontaneous
  Country: US (occurrence: US)
  Receive Date: 20131204
  Receipt Date: 20140210
  Transmission Date: 20141002
  Serious: No
  Sender: FDA-Public Use
  Company Number: US-PFIZER INC-2013345238

PATIENT
  Age: 62 Year
  Sex: Male
  Weight: 95.24 kg

DRUGS (3)
  1. NEURONTIN [Suspect]
     Indication: NERVE INJURY
     Dosage: 600 MG, 3X/DAY
     Dates: end: 2013
  2. NEURONTIN [Suspect]
     Dosage: UNK
  3. BIAXIN [Concomitant]
     Indication: ARTHRITIS
     Dosage: UNK

REACTIONS (2)
  - Drug ineffective for unapproved indication [Unknown]
  - Diabetic neuropathy [Unknown]
